FAERS Safety Report 4469706-2 (Version None)
Quarter: 2004Q4

REPORT INFORMATION
  Report Type: 
  Country: None (occurrence: None)
  Receive Date: 20041008
  Receipt Date: 20040929
  Transmission Date: 20050328
  Serious: Yes (Other)
  Sender: FDA-Public Use
  Company Number: JP-JNJFOC-20040909301

PATIENT
  Age: 80 Year
  Sex: Male

DRUGS (3)
  1. TAVANIC [Suspect]
     Indication: DRUG USE FOR UNKNOWN INDICATION
     Route: 049
     Dates: start: 20040515, end: 20040520
  2. CORTICOSTEROID [Interacting]
     Indication: DRUG USE FOR UNKNOWN INDICATION
  3. PROFLOX [Concomitant]
     Route: 049
     Dates: start: 20040316, end: 20040321

REACTIONS (2)
  - DRUG INTERACTION [None]
  - TENDONITIS [None]
